FAERS Safety Report 6494826-0 (Version None)
Quarter: 2009Q4

REPORT INFORMATION
  Report Type: 
  Country: None (occurrence: None)
  Receive Date: 20091214
  Receipt Date: 20090403
  Transmission Date: 20100525
  Serious: No
  Sender: FDA-Public Use
  Company Number: US-BRISTOL-MYERS SQUIBB COMPANY-14566780

PATIENT
  Age: 3 Decade
  Sex: Male
  Weight: 113 kg

DRUGS (1)
  1. ABILIFY [Suspect]
     Indication: DEPRESSION
     Dates: start: 20090101

REACTIONS (1)
  - URINE AMPHETAMINE POSITIVE [None]
